FAERS Safety Report 6453316-1 (Version None)
Quarter: 2009Q4

REPORT INFORMATION
  Report Type: 
  Country: None (occurrence: None)
  Receive Date: 20091123
  Receipt Date: 20091123
  Transmission Date: 20100525
  Serious: Yes (Disabling)
  Sender: FDA-Public Use
  Company Number: None

PATIENT
  Age: 46 Year
  Sex: Female
  Weight: 102.0593 kg

DRUGS (1)
  1. CLIMARA [Suspect]
     Indication: MENOPAUSAL DISORDER
     Dosage: 0.1 MG/DAY PATCH APPLIEDONCE A WEEK TRANSDERMAL
     Route: 062
     Dates: start: 20090107, end: 20091121

REACTIONS (1)
  - CATARACT [None]
